FAERS Safety Report 16974731 (Version 16)
Quarter: 2025Q3

REPORT INFORMATION
  Report Type: Report from Study
  Country: EU (occurrence: EU)
  Receive Date: 20191030
  Receipt Date: 20250715
  Transmission Date: 20251021
  Serious: Yes (Death, Other)
  Sender: ABBVIE
  Company Number: EU-ABBVIE-19K-056-2977950-00

PATIENT
  Age: 68 Year
  Sex: Male
  Weight: 111 kg

DRUGS (31)
  1. VENETOCLAX [Suspect]
     Active Substance: VENETOCLAX
     Indication: Chronic lymphocytic leukaemia
     Dosage: SYMPTOMS SUGGESTIVE OF TUMOR LYSIS SYNDROME
     Route: 048
     Dates: start: 20190516, end: 20190522
  2. VENETOCLAX [Suspect]
     Active Substance: VENETOCLAX
     Indication: Chronic lymphocytic leukaemia
     Dosage: DOSE INCREASE IN ACCORDANCE WITH THE VENETOCLAX DOSE SCHEDULE
     Route: 048
     Dates: start: 20190612, end: 20200315
  3. VENETOCLAX [Suspect]
     Active Substance: VENETOCLAX
     Indication: Chronic lymphocytic leukaemia
     Route: 048
     Dates: start: 20190428, end: 20190515
  4. VENETOCLAX [Suspect]
     Active Substance: VENETOCLAX
     Indication: Chronic lymphocytic leukaemia
     Dosage: DOSE INCREASE IN ACCORDANCE WITH THE VENETOCLAX DOSE SCHEDULE
     Route: 048
     Dates: start: 20190530, end: 20190611
  5. VENETOCLAX [Suspect]
     Active Substance: VENETOCLAX
     Indication: Chronic lymphocytic leukaemia
     Dosage: DOSE INCREASE IN ACCORDANCE WITH THE VENETOCLAX DOSE SCHEDULE
     Route: 048
     Dates: start: 20190523, end: 20190529
  6. OMEPRAZOLE [Concomitant]
     Active Substance: OMEPRAZOLE
     Indication: Bronchitis
     Dates: start: 20190113
  7. EMEND [Concomitant]
     Active Substance: APREPITANT
     Indication: Prophylaxis of nausea and vomiting
     Dates: start: 20190430, end: 20190502
  8. FASTURTEC [Concomitant]
     Active Substance: RASBURICASE
     Indication: Prophylaxis
     Dates: start: 20190428
  9. CRESEMBA [Concomitant]
     Active Substance: ISAVUCONAZONIUM SULFATE
     Indication: Mucormycosis
     Dates: start: 20190510, end: 201906
  10. VALACYCLOVIR HYDROCHLORIDE [Concomitant]
     Active Substance: VALACYCLOVIR HYDROCHLORIDE
     Indication: Infection prophylaxis
     Dates: start: 20190430
  11. Cytarabine;Dexamethasone [Concomitant]
     Indication: Chronic lymphocytic leukaemia
  12. PRIMPERAN [Concomitant]
     Active Substance: METOCLOPRAMIDE HYDROCHLORIDE
     Indication: Prophylaxis of nausea and vomiting
     Dates: start: 20190430
  13. LOVENOX [Concomitant]
     Active Substance: ENOXAPARIN SODIUM
     Indication: Mucormycosis
     Dates: start: 20190511, end: 20190614
  14. DEXAMETHASONE [Concomitant]
     Active Substance: DEXAMETHASONE
     Indication: Chronic lymphocytic leukaemia
  15. LENOGRASTIM [Concomitant]
     Active Substance: LENOGRASTIM
     Indication: Neutrophil count abnormal
     Dates: start: 20190430
  16. TERBUTALINE [Concomitant]
     Active Substance: TERBUTALINE
     Indication: Mucormycosis
     Dates: start: 20190511, end: 20190614
  17. RITUXIMAB [Concomitant]
     Active Substance: RITUXIMAB
     Indication: Chronic lymphocytic leukaemia
     Dates: start: 20190528, end: 20191106
  18. NOXAFIL [Concomitant]
     Active Substance: POSACONAZOLE
     Indication: Mucormycosis
     Dates: start: 20190512, end: 20190614
  19. EBASTINE [Concomitant]
     Active Substance: EBASTINE
     Indication: Premedication
     Dates: start: 20190528, end: 20191106
  20. PREDNISONE [Concomitant]
     Active Substance: PREDNISONE
     Indication: Chronic lymphocytic leukaemia
     Dates: start: 20190528, end: 20191106
  21. LEUCOVORIN CALCIUM [Concomitant]
     Active Substance: LEUCOVORIN CALCIUM
     Indication: Mucormycosis
     Dates: start: 20190511, end: 20190614
  22. ESOMEPRAZOLE [Concomitant]
     Active Substance: ESOMEPRAZOLE
     Indication: Gastrooesophageal reflux prophylaxis
     Dates: start: 20191009
  23. ACUPAN [Concomitant]
     Active Substance: NEFOPAM HYDROCHLORIDE
     Indication: Mucormycosis
     Dates: start: 20190511, end: 20190614
  24. AUGMENTIN [Concomitant]
     Active Substance: AMOXICILLIN\CLAVULANATE POTASSIUM
     Indication: Bronchitis
     Dates: start: 20191127, end: 20191204
  25. FUROSEMIDE [Concomitant]
     Active Substance: FUROSEMIDE
     Indication: Mucormycosis
     Dates: start: 20190511
  26. BACTRIM [Concomitant]
     Active Substance: SULFAMETHOXAZOLE\TRIMETHOPRIM
     Indication: Infection prophylaxis
     Dates: start: 20190430
  27. ACETAMINOPHEN [Concomitant]
     Active Substance: ACETAMINOPHEN
     Indication: Mucormycosis
     Dates: start: 20190511
  28. PIPERACILLIN SODIUM\TAZOBACTAM SODIUM [Concomitant]
     Active Substance: PIPERACILLIN SODIUM\TAZOBACTAM SODIUM
     Indication: Bacterial infection
     Dates: start: 20190513, end: 20190525
  29. OCTAGAM IMMUNE GLOBULIN (HUMAN) [Concomitant]
     Active Substance: HUMAN IMMUNOGLOBULIN G
     Indication: Supplementation therapy
     Dates: start: 20190513, end: 20191204
  30. Solupred [Concomitant]
     Indication: Bronchitis
     Dates: start: 20191127, end: 20191204
  31. AMPHOTERICIN B [Concomitant]
     Active Substance: AMPHOTERICIN B
     Indication: Mucormycosis
     Dates: start: 20190503, end: 20190510

REACTIONS (40)
  - Death [Fatal]
  - Pyrexia [Recovered/Resolved]
  - Cataract [Not Recovered/Not Resolved]
  - Unevaluable event [Unknown]
  - Cataract [Not Recovered/Not Resolved]
  - Hepatic cytolysis [Not Recovered/Not Resolved]
  - Richter^s syndrome [Not Recovered/Not Resolved]
  - Optic nerve cupping [Not Recovered/Not Resolved]
  - Mucormycosis [Recovered/Resolved]
  - Pulmonary mucormycosis [Recovered/Resolved]
  - Acute kidney injury [Recovered/Resolved]
  - Blood lactate dehydrogenase increased [Recovered/Resolved]
  - Hypogammaglobulinaemia [Not Recovered/Not Resolved]
  - Skin lesion [Not Recovered/Not Resolved]
  - Streptococcal infection [Not Recovered/Not Resolved]
  - Aspergillus infection [Not Recovered/Not Resolved]
  - Intestinal transit time increased [Not Recovered/Not Resolved]
  - Bronchitis [Not Recovered/Not Resolved]
  - Escherichia infection [Recovered/Resolved]
  - Blood albumin abnormal [Recovered/Resolved]
  - Off label use [Unknown]
  - Asthenia [Recovered/Resolved]
  - Hyperphosphataemia [Not Recovered/Not Resolved]
  - Anaemia [Recovered/Resolved]
  - Tumour lysis syndrome [Recovered/Resolved]
  - Neutropenia [Recovered/Resolved]
  - Diarrhoea [Not Recovered/Not Resolved]
  - Leukopenia [Recovered/Resolved]
  - Neuralgia [Not Recovered/Not Resolved]
  - Lymphopenia [Not Recovered/Not Resolved]
  - Arthralgia [Not Recovered/Not Resolved]
  - Sciatica [Not Recovered/Not Resolved]
  - Glaucoma [Not Recovered/Not Resolved]
  - Rhinovirus infection [Recovered/Resolved]
  - Facial paralysis [Not Recovered/Not Resolved]
  - Oedema peripheral [Recovered/Resolved]
  - Aplasia pure red cell [Recovered/Resolved]
  - Hypogammaglobulinaemia [Recovered/Resolved]
  - Back pain [Not Recovered/Not Resolved]
  - Thrombocytopenia [Not Recovered/Not Resolved]

NARRATIVE: CASE EVENT DATE: 20190428
